FAERS Safety Report 6232126-4 (Version None)
Quarter: 2009Q2

REPORT INFORMATION
  Report Type: 
  Country: None (occurrence: None)
  Receive Date: 20090617
  Receipt Date: 20090605
  Transmission Date: 20091009
  Serious: Yes (Hospitalization, Disabling, Other)
  Sender: FDA-Public Use
  Company Number: US-ROCHE-416081

PATIENT
  Sex: Male
  Weight: 83.9 kg

DRUGS (9)
  1. ACCUTANE [Suspect]
     Indication: ACNE
     Route: 048
     Dates: start: 19981001, end: 20000107
  2. ACCUTANE [Suspect]
     Dosage: DOSING STATED AS MONDAY TO FRIDAY.
     Route: 048
     Dates: start: 20000107, end: 20000228
  3. ALBUTEROL [Concomitant]
     Indication: ASTHMA
     Dates: start: 19900101
  4. SALMETEROL [Concomitant]
     Indication: ASTHMA
     Dates: start: 19900101
  5. RITALIN [Concomitant]
     Route: 048
     Dates: start: 19960101, end: 19990101
  6. IBUPROFEN [Concomitant]
  7. ANTIHISTAMINES NOS [Concomitant]
     Dosage: TAKEN 5 TIMES A YEAR.
  8. SUDAFED 12 HOUR [Concomitant]
     Dosage: 3 TIMES A YEAR.
     Dates: start: 19900101
  9. ADDERALL 10 [Concomitant]

REACTIONS (17)
  - ARTHRALGIA [None]
  - ATTENTION DEFICIT/HYPERACTIVITY DISORDER [None]
  - CHRONIC FATIGUE SYNDROME [None]
  - COLITIS [None]
  - COLITIS ULCERATIVE [None]
  - DRY SKIN [None]
  - ECZEMA [None]
  - GASTRITIS [None]
  - GASTROINTESTINAL DISORDER [None]
  - GASTROOESOPHAGEAL REFLUX DISEASE [None]
  - HAEMORRHOIDS [None]
  - INFLAMMATORY BOWEL DISEASE [None]
  - INTESTINAL HAEMORRHAGE [None]
  - IRRITABLE BOWEL SYNDROME [None]
  - LIP DRY [None]
  - MULTI-ORGAN DISORDER [None]
  - PROCTITIS ULCERATIVE [None]
